FAERS Safety Report 15385657 (Version 1)
Quarter: 2018Q3

REPORT INFORMATION
  Report Type: Spontaneous
  Country: US (occurrence: US)
  Receive Date: 20180907
  Receipt Date: 20180907
  Transmission Date: 20181010
  Serious: Yes (Other)
  Sender: FDA-Public Use
  Company Number: None

PATIENT
  Age: 67 Year
  Sex: Female
  Weight: 98.55 kg

DRUGS (16)
  1. CAPECITABINE. [Suspect]
     Active Substance: CAPECITABINE
     Indication: BREAST CANCER
     Route: 048
     Dates: start: 20180109, end: 20180907
  2. MORPHINE [Concomitant]
     Active Substance: MORPHINE
  3. MARINOL [Concomitant]
     Active Substance: DRONABINOL
  4. ZOFRAN [Concomitant]
     Active Substance: ONDANSETRON HYDROCHLORIDE
  5. POTASSIUM CHLORIDE. [Concomitant]
     Active Substance: POTASSIUM CHLORIDE
  6. ATORVASTATIN [Concomitant]
     Active Substance: ATORVASTATIN
  7. XARELTO [Concomitant]
     Active Substance: RIVAROXABAN
  8. XANAX [Concomitant]
     Active Substance: ALPRAZOLAM
  9. RANITIDINE. [Concomitant]
     Active Substance: RANITIDINE
  10. COREG [Concomitant]
     Active Substance: CARVEDILOL
  11. LASIX [Concomitant]
     Active Substance: FUROSEMIDE
  12. PROMETHAZINE [Concomitant]
     Active Substance: PROMETHAZINE\PROMETHAZINE HYDROCHLORIDE
  13. FENTANYL. [Concomitant]
     Active Substance: FENTANYL
  14. NORCO [Concomitant]
     Active Substance: ACETAMINOPHEN\HYDROCODONE BITARTRATE
  15. PAXIL [Concomitant]
     Active Substance: PAROXETINE HYDROCHLORIDE
  16. TEMAZEPAM. [Concomitant]
     Active Substance: TEMAZEPAM

REACTIONS (1)
  - Disease progression [None]

NARRATIVE: CASE EVENT DATE: 20180907
